FAERS Safety Report 8485412 (Version 3)
Quarter: 2012Q4

REPORT INFORMATION
  Report Type: 
  Country: US (occurrence: US)
  Receive Date: 20120330
  Receipt Date: 20120920
  Transmission Date: 20130627
  Serious: Yes (Hospitalization, Disabling, Other)
  Sender: FDA-Public Use
  Company Number: US-009507513-1203USA03835

PATIENT

DRUGS (7)
  1. FOSAMAX [Suspect]
     Indication: OSTEOPOROSIS
     Dosage: 70 mg, qw
     Route: 048
     Dates: start: 20050106, end: 200806
  2. ALENDRONATE SODIUM [Suspect]
     Indication: OSTEOPOROSIS
     Dosage: 70 mg, qw
     Route: 048
     Dates: start: 200806, end: 201111
  3. VITAMINS (UNSPECIFIED) [Concomitant]
  4. DIOVAN [Concomitant]
     Indication: HYPERTENSION
     Dosage: 160 mg, qd
  5. CALCIUM (UNSPECIFIED) [Concomitant]
  6. VITAMIN D (UNSPECIFIED) [Concomitant]
  7. CALTRATE WITH VITAMIN D [Concomitant]

REACTIONS (14)
  - Femur fracture [Not Recovered/Not Resolved]
  - Radius fracture [Unknown]
  - Pneumonia [Unknown]
  - Femur fracture [Not Recovered/Not Resolved]
  - Medical device complication [Unknown]
  - Oropharyngeal pain [Unknown]
  - Viral infection [Unknown]
  - Anaemia [Unknown]
  - Tachycardia [Unknown]
  - Muscle strain [Unknown]
  - Limb asymmetry [Unknown]
  - Osteoarthritis [Unknown]
  - Musculoskeletal discomfort [Unknown]
  - Vertigo [Unknown]
